FAERS Safety Report 21615220 (Version 2)
Quarter: 2022Q4

REPORT INFORMATION
  Report Type: Spontaneous
  Country: IT (occurrence: IT)
  Receive Date: 20221118
  Receipt Date: 20221205
  Transmission Date: 20230113
  Serious: Yes (Other)
  Sender: FDA-Public Use
  Company Number: IT-002147023-NVSC2022IT257502

PATIENT

DRUGS (1)
  1. RUXOLITINIB [Suspect]
     Active Substance: RUXOLITINIB
     Indication: Polycythaemia vera
     Dosage: 10 DOSAGE FORM, BID
     Route: 048

REACTIONS (6)
  - Metastases to nervous system [Unknown]
  - Metastases to soft tissue [Unknown]
  - Squamous cell carcinoma [Unknown]
  - Skin cancer [Not Recovered/Not Resolved]
  - Metastases to eye [Unknown]
  - Second primary malignancy [Unknown]

NARRATIVE: CASE EVENT DATE: 20220627
